FAERS Safety Report 9960350 (Version 3)
Quarter: 2015Q3

REPORT INFORMATION
  Report Type: Report from Study
  Country: JP (occurrence: JP)
  Receive Date: 20140305
  Receipt Date: 20150710
  Transmission Date: 20151125
  Serious: Yes (Death)
  Sender: FDA-Public Use
  Company Number: JP-OTSUKA-JP-2014-11979

PATIENT

DRUGS (8)
  1. LASIX [Suspect]
     Active Substance: FUROSEMIDE
     Dosage: 20 MG/DAY
     Route: 048
     Dates: start: 20120630, end: 20120729
  2. LASIX [Suspect]
     Active Substance: FUROSEMIDE
     Dosage: 60 MG/DAY
     Route: 048
     Dates: start: 20120629, end: 20120629
  3. ALDACTONE A [Concomitant]
     Active Substance: SPIRONOLACTONE
     Indication: CARDIAC FAILURE
     Dosage: 25 MG/DAY
     Route: 048
     Dates: start: 20120629, end: 20120729
  4. TOLVAPTAN [Suspect]
     Active Substance: TOLVAPTAN
     Indication: OEDEMA DUE TO CARDIAC DISEASE
     Dosage: 3.75 MG, QD
     Route: 048
     Dates: start: 20120625, end: 20120725
  5. LASIX [Suspect]
     Active Substance: FUROSEMIDE
     Indication: CARDIAC FAILURE
     Dosage: 40 MG/DAY
     Route: 048
     Dates: end: 20120628
  6. LASIX M [Suspect]
     Active Substance: FUROSEMIDE
     Indication: CARDIAC FAILURE
     Dosage: 10 MG/DAY
     Route: 042
     Dates: start: 20120701, end: 20120701
  7. WARFARIN K [Concomitant]
     Active Substance: WARFARIN POTASSIUM
     Indication: CARDIAC FAILURE
     Dosage: 0.5 MG/DAY
     Route: 048
  8. AMIODARONE HYDROCHLORIDE. [Concomitant]
     Active Substance: AMIODARONE HYDROCHLORIDE
     Indication: CARDIAC FAILURE
     Dosage: 100 MG/DAY
     Route: 048

REACTIONS (2)
  - Blood urea increased [Fatal]
  - Dehydration [Recovered/Resolved]

NARRATIVE: CASE EVENT DATE: 20120705
